FAERS Safety Report 25113508 (Version 1)
Quarter: 2025Q1

REPORT INFORMATION
  Report Type: Spontaneous
  Country: NL (occurrence: NL)
  Receive Date: 20250324
  Receipt Date: 20250324
  Transmission Date: 20250408
  Serious: Yes (Other)
  Sender: MYLAN
  Company Number: None

PATIENT
  Age: 64 Year
  Sex: Female

DRUGS (4)
  1. CITALOPRAM HYDROBROMIDE [Suspect]
     Active Substance: CITALOPRAM HYDROBROMIDE
     Indication: Depression
     Dosage: 1 DOSAGE FORM, QD (1X PER DAY 1 PIECE) (COATED TABLE)
     Dates: start: 20240724, end: 20241017
  2. LORAZEPAM [Concomitant]
     Active Substance: LORAZEPAM
     Indication: Anxiety
  3. LORAZEPAM [Concomitant]
     Active Substance: LORAZEPAM
     Indication: Panic reaction
  4. TIOTROPIUM [Concomitant]
     Active Substance: TIOTROPIUM

REACTIONS (6)
  - Electrocardiogram QT prolonged [Recovered/Resolved]
  - Aphasia [Recovered/Resolved]
  - Dyspnoea [Recovered/Resolved]
  - Dry eye [Recovered/Resolved]
  - Dry mouth [Recovered/Resolved]
  - Visual impairment [Recovered/Resolved]
